FAERS Safety Report 18714866 (Version 1)
Quarter: 2021Q1

REPORT INFORMATION
  Report Type: Spontaneous
  Country: CN (occurrence: CN)
  Receive Date: 20210107
  Receipt Date: 20210107
  Transmission Date: 20210419
  Serious: Yes (Other)
  Sender: FDA-Public Use
  Company Number: CN-BAXTER-2021BAX000067

PATIENT
  Age: 70 Year
  Sex: Female
  Weight: 50 kg

DRUGS (2)
  1. 20% MANNITOL INJECTION [Suspect]
     Active Substance: MANNITOL
     Indication: DEHYDRATION
  2. 20% MANNITOL INJECTION [Suspect]
     Active Substance: MANNITOL
     Indication: REDUCTION OF INCREASED INTRACRANIAL PRESSURE
     Route: 041
     Dates: start: 20200802, end: 20200804

REACTIONS (1)
  - Acute kidney injury [Recovered/Resolved]

NARRATIVE: CASE EVENT DATE: 20200804
